FAERS Safety Report 6165835-6 (Version None)
Quarter: 2009Q2

REPORT INFORMATION
  Report Type: 
  Country: None (occurrence: None)
  Receive Date: 20090423
  Receipt Date: 20081121
  Transmission Date: 20091009
  Serious: Yes (Hospitalization)
  Sender: FDA-Public Use
  Company Number: JP-PFIZER INC-2008087743

PATIENT

DRUGS (13)
  1. PREGABALIN [Suspect]
     Indication: DIABETIC NEUROPATHY
     Dosage: 75 MG, 2X/DAY
     Dates: start: 20080308, end: 20081018
  2. PRAVASTATIN SODIUM [Concomitant]
     Route: 048
     Dates: start: 20031106
  3. LOXONIN [Concomitant]
     Route: 048
     Dates: start: 20080315, end: 20081021
  4. PARIET [Concomitant]
     Route: 048
     Dates: start: 20080204, end: 20081022
  5. GLIMICRON [Concomitant]
     Route: 048
     Dates: start: 20001214
  6. GLUCOBAY [Concomitant]
     Route: 048
     Dates: start: 20010920
  7. MELBIN [Concomitant]
     Route: 048
     Dates: start: 20080623
  8. HYALEIN [Concomitant]
     Route: 047
     Dates: start: 20060720
  9. ZOLOFT [Concomitant]
     Route: 048
     Dates: start: 20080616, end: 20081017
  10. LEXOTAN [Concomitant]
     Route: 048
     Dates: start: 20080417, end: 20081017
  11. NORTRIPTYLINE HCL [Concomitant]
     Route: 048
     Dates: start: 20080924, end: 20081017
  12. LAXOBERON [Concomitant]
     Route: 048
     Dates: start: 20080823, end: 20081017
  13. MAGNESIUM OXIDE [Concomitant]
     Route: 048
     Dates: start: 20080616, end: 20081017

REACTIONS (1)
  - CEREBRAL INFARCTION [None]
